FAERS Safety Report 18649434 (Version 1)
Quarter: 2020Q4

REPORT INFORMATION
  Report Type: Spontaneous
  Country: US (occurrence: US)
  Receive Date: 20201222
  Receipt Date: 20201222
  Transmission Date: 20210114
  Serious: Yes (Death)
  Sender: FDA-Public Use
  Company Number: None

PATIENT
  Age: 53 Year
  Sex: Female

DRUGS (20)
  1. WIXELA INHALER DISKUS [Concomitant]
  2. KETOCONAZOLE 2% SHAMPOO [Concomitant]
     Active Substance: KETOCONAZOLE
  3. BACTRIM [Concomitant]
     Active Substance: SULFAMETHOXAZOLE\TRIMETHOPRIM
  4. ATRIPLA [Suspect]
     Active Substance: EFAVIRENZ\EMTRICITABINE\TENOFOVIR DISOPROXIL FUMARATE
     Indication: HIV INFECTION
     Route: 048
     Dates: start: 20190419, end: 20201205
  5. VIT D 400 IU [Concomitant]
  6. DULOXETINE 20MG DR [Concomitant]
  7. FOLIC ACID 1MG [Concomitant]
     Active Substance: FOLIC ACID
  8. FUROSEMIDE 20MG [Concomitant]
     Active Substance: FUROSEMIDE
  9. MONTELUKAST [Concomitant]
     Active Substance: MONTELUKAST SODIUM
  10. OMEPRAZOLE 20MG [Concomitant]
     Active Substance: OMEPRAZOLE
  11. ZOLPIDEM [Concomitant]
     Active Substance: ZOLPIDEM TARTRATE
  12. DOCUSATE 100MG [Concomitant]
     Active Substance: DOCUSATE
  13. AMITRYPTYLINE 50MG [Concomitant]
  14. LIDOCAINE 5% PATCH [Concomitant]
     Active Substance: LIDOCAINE
  15. SILDENAFIL. [Suspect]
     Active Substance: SILDENAFIL
     Indication: PULMONARY HYPERTENSION
     Route: 048
  16. SILDENFIL 20MG [Concomitant]
  17. HYDROXYZINE 25MG [Concomitant]
  18. PROAIR INHALER [Concomitant]
     Active Substance: ALBUTEROL SULFATE
  19. SENNA 8.6MG [Concomitant]
  20. NIFEDIPINE 60MG ER [Concomitant]

REACTIONS (1)
  - Acute kidney injury [None]

NARRATIVE: CASE EVENT DATE: 20201205
